FAERS Safety Report 9824565 (Version 2)
Quarter: 2014Q1

REPORT INFORMATION
  Report Type: Spontaneous
  Country: US (occurrence: US)
  Receive Date: 20140117
  Receipt Date: 20140117
  Transmission Date: 20141002
  Serious: No
  Sender: FDA-Public Use
  Company Number: US-GILEAD-2011-0038865

PATIENT
  Age: 71 Year
  Sex: Female

DRUGS (3)
  1. LETAIRIS [Suspect]
     Indication: PULMONARY HYPERTENSION
     Route: 048
     Dates: start: 20110111
  2. LETAIRIS [Suspect]
     Indication: SCLERODERMA
  3. RITUXAN [Concomitant]

REACTIONS (4)
  - Pyrexia [Unknown]
  - Sinusitis [Unknown]
  - Dyspnoea [Unknown]
  - Heart rate increased [Unknown]
